FAERS Safety Report 4781680-8 (Version None)
Quarter: 2005Q3

REPORT INFORMATION
  Report Type: 
  Country: None (occurrence: None)
  Receive Date: 20050927
  Receipt Date: 20050908
  Transmission Date: 20060218
  Serious: Yes (Other)
  Sender: FDA-Public Use
  Company Number: EWC050945744

PATIENT
  Age: 50 Year
  Sex: Female

DRUGS (1)
  1. XIGRIS [Suspect]
     Dates: start: 20050901, end: 20050905

REACTIONS (6)
  - BLOOD PRESSURE INCREASED [None]
  - DISSEMINATED INTRAVASCULAR COAGULATION [None]
  - MULTI-ORGAN FAILURE [None]
  - MYDRIASIS [None]
  - NERVOUS SYSTEM DISORDER [None]
  - PUPILLARY REFLEX IMPAIRED [None]
